FAERS Safety Report 17505532 (Version 1)
Quarter: 2020Q1

REPORT INFORMATION
  Report Type: Spontaneous
  Country: CA (occurrence: CA)
  Receive Date: 20200305
  Receipt Date: 20200305
  Transmission Date: 20200409
  Serious: Yes (Other)
  Sender: FDA-Public Use
  Company Number: CA-SA-2020SA053455

PATIENT
  Age: 75 Year
  Sex: Male

DRUGS (13)
  1. ZOLPIDEM TARTRATE. [Suspect]
     Active Substance: ZOLPIDEM TARTRATE
     Indication: INSOMNIA
     Dosage: 5.0 MG, QD
     Route: 060
  2. METOPROLOL. [Concomitant]
     Active Substance: METOPROLOL
  3. OXYCOCET [Concomitant]
     Active Substance: ACETAMINOPHEN\OXYCODONE HYDROCHLORIDE
  4. METFORMIN [Concomitant]
     Active Substance: METFORMIN HYDROCHLORIDE
  5. PREGABALIN. [Concomitant]
     Active Substance: PREGABALIN
  6. VITAMIN B12 [Concomitant]
     Active Substance: CYANOCOBALAMIN
  7. AMLODIPINE [Concomitant]
     Active Substance: AMLODIPINE BESYLATE
  8. EZETIMIBE. [Concomitant]
     Active Substance: EZETIMIBE
  9. SIMVASTATIN. [Concomitant]
     Active Substance: SIMVASTATIN
  10. ASA [Concomitant]
     Active Substance: ASPIRIN
  11. PERINDOPRIL [Suspect]
     Active Substance: PERINDOPRIL
  12. MELOXICAM. [Concomitant]
     Active Substance: MELOXICAM
  13. TRAJENTA [Concomitant]
     Active Substance: LINAGLIPTIN

REACTIONS (4)
  - Insomnia [Recovered/Resolved]
  - Dry mouth [Recovered/Resolved]
  - Nightmare [Recovered/Resolved]
  - Product substitution issue [Unknown]
